FAERS Safety Report 7680731-0 (Version None)
Quarter: 2011Q3

REPORT INFORMATION
  Report Type: 
  Country: None (occurrence: None)
  Receive Date: 20110812
  Receipt Date: 20110805
  Transmission Date: 20111222
  Serious: Yes (Death, Hospitalization)
  Sender: FDA-Public Use
  Company Number: FR-GENENTECH-322675

PATIENT
  Sex: Male
  Weight: 62 kg

DRUGS (5)
  1. CYTARABINE [Suspect]
     Indication: MANTLE CELL LYMPHOMA
     Dosage: 640 MG, UNK
     Route: 042
     Dates: start: 20110626, end: 20110629
  2. MELPHALAN HYDROCHLORIDE [Suspect]
     Indication: MANTLE CELL LYMPHOMA
     Dosage: 225 MG, UNK
     Route: 042
     Dates: start: 20110630, end: 20110630
  3. ETOPOSIDE [Suspect]
     Indication: MANTLE CELL LYMPHOMA
     Dosage: 640 MG, UNK
     Route: 042
     Dates: start: 20110626, end: 20110629
  4. RITUXIMAB [Suspect]
     Indication: MANTLE CELL LYMPHOMA
     Dosage: 800 MG, UNK
     Route: 042
     Dates: start: 20110624, end: 20110624
  5. CARMUSTINE [Suspect]
     Indication: MANTLE CELL LYMPHOMA
     Dosage: 479.52 MG, UNK
     Route: 042
     Dates: start: 20110625, end: 20110625

REACTIONS (2)
  - ESCHERICHIA INFECTION [None]
  - FEBRILE BONE MARROW APLASIA [None]
